FAERS Safety Report 6628248-6 (Version None)
Quarter: 2010Q1

REPORT INFORMATION
  Report Type: 
  Country: None (occurrence: None)
  Receive Date: 20100311
  Receipt Date: 20100226
  Transmission Date: 20100710
  Serious: Yes (Hospitalization, Other)
  Sender: FDA-Public Use
  Company Number: PHHY2010JP05053

PATIENT
  Age: 47 Year
  Sex: Female

DRUGS (12)
  1. NEORAL [Suspect]
     Indication: PEMPHIGOID
     Dosage: 3 MG/KG, DAILY
     Route: 048
     Dates: start: 20090604, end: 20090621
  2. PREDNISOLONE [Suspect]
     Indication: PEMPHIGOID
     Dosage: 0.5 MG/KG/DAY
     Dates: start: 20081125
  3. PREDNISOLONE [Suspect]
     Dosage: 0.8 MG/KG/DAY
  4. PREDNISOLONE [Suspect]
     Dosage: 0.35 MG/KG
  5. PREDNISOLONE [Suspect]
     Dosage: 17.5 MG DAILY
     Route: 048
     Dates: start: 20081125
  6. MIZORIBINE [Suspect]
     Indication: PEMPHIGOID
     Dosage: 150 MG/DAY
     Route: 048
     Dates: start: 20090604
  7. BONALON [Concomitant]
     Dosage: 35 MG
     Route: 048
     Dates: start: 20081127
  8. TAKEPRON [Concomitant]
     Dosage: 30 MG
     Route: 048
     Dates: start: 20090521
  9. ALOSENN [Concomitant]
     Dosage: 0.5 MG
     Route: 048
     Dates: start: 20081224
  10. CINAL [Concomitant]
     Dosage: 600 MG
     Route: 048
     Dates: start: 20081205
  11. OLMESARTAN MEDOXOMIL [Concomitant]
     Dosage: 20 MG
     Route: 048
     Dates: start: 20090516
  12. KEISHIBUKURYOUGAN [Concomitant]
     Dosage: 7.5 G
     Route: 048
     Dates: start: 20090603

REACTIONS (1)
  - PERITONITIS [None]
